FAERS Safety Report 7280839-8 (Version None)
Quarter: 2011Q1

REPORT INFORMATION
  Report Type: 
  Country: None (occurrence: None)
  Receive Date: 20110208
  Receipt Date: 20110208
  Transmission Date: 20110831
  Serious: Yes (Other)
  Sender: FDA-Public Use
  Company Number: None

PATIENT
  Age: 44 Year
  Sex: Female
  Weight: 55.3388 kg

DRUGS (2)
  1. BETASERON [Suspect]
  2. ALCOHOL WIPES TRIAD [Suspect]
     Indication: MULTIPLE SCLEROSIS
     Dosage: EVERY OTHER DAY SQ
     Route: 058
     Dates: start: 20101215, end: 20101217

REACTIONS (9)
  - INJECTION SITE WARMTH [None]
  - INJECTION SITE SWELLING [None]
  - DYSSTASIA [None]
  - SLEEP DISORDER [None]
  - INFECTION [None]
  - INJECTION SITE REACTION [None]
  - INJECTION SITE ERYTHEMA [None]
  - PAIN [None]
  - GAIT DISTURBANCE [None]
